FAERS Safety Report 9905465 (Version 2)
Quarter: 2014Q1

REPORT INFORMATION
  Report Type: Spontaneous
  Country: US (occurrence: US)
  Receive Date: 20140218
  Receipt Date: 20140218
  Transmission Date: 20141002
  Serious: Yes (Hospitalization)
  Sender: FDA-Public Use
  Company Number: US-GLAXOSMITHKLINE-A0851906A

PATIENT
  Sex: Male

DRUGS (7)
  1. AVANDIA [Suspect]
     Indication: DIABETES MELLITUS
     Dosage: 8MG PER DAY
     Route: 048
     Dates: start: 200203, end: 200608
  2. GLIPIZIDE [Concomitant]
  3. HCTZ [Concomitant]
  4. LESCOL [Concomitant]
  5. GLUCOTROL [Concomitant]
  6. PROZAC [Concomitant]
  7. METOPROLOL [Concomitant]

REACTIONS (6)
  - Intracardiac thrombus [Unknown]
  - Myocardial infarction [Unknown]
  - Ischaemic stroke [Unknown]
  - Congestive cardiomyopathy [Unknown]
  - Atrial fibrillation [Unknown]
  - Cardiac failure congestive [Unknown]
